FAERS Safety Report 9447798 (Version 1)
Quarter: 2013Q3

REPORT INFORMATION
  Report Type: Spontaneous
  Country: FR (occurrence: None)
  Receive Date: 20130805
  Receipt Date: 20130805
  Transmission Date: 20140515
  Serious: Yes (Other)
  Sender: FDA-Public Use
  Company Number: 1760391

PATIENT
  Age: 72 Year
  Sex: Female

DRUGS (2)
  1. CARBOPLATIN [Suspect]
     Indication: PLEURAL MESOTHELIOMA
     Dosage: 1 MONTH (NOT OTHERWISE SPECIFIED)
     Route: 042
     Dates: start: 20120323, end: 20120323
  2. ALIMTA [Concomitant]

REACTIONS (5)
  - Tremor [None]
  - Urticaria [None]
  - Tachycardia [None]
  - Neutropenia [None]
  - Thrombocytopenia [None]
